FAERS Safety Report 17588221 (Version 1)
Quarter: 2020Q1

REPORT INFORMATION
  Report Type: Spontaneous
  Country: HU (occurrence: HU)
  Receive Date: 20200326
  Receipt Date: 20200326
  Transmission Date: 20200409
  Serious: Yes (Hospitalization, Other)
  Sender: FDA-Public Use
  Company Number: HU-BAUSCH-BL-2020-008165

PATIENT
  Sex: Male

DRUGS (8)
  1. TANYZ [Concomitant]
     Active Substance: TAMSULOSIN HYDROCHLORIDE
     Indication: PRODUCT USED FOR UNKNOWN INDICATION
     Dosage: IN THE EVENING
     Route: 065
  2. CUTIVATE [Concomitant]
     Active Substance: FLUTICASONE PROPIONATE
     Indication: PRODUCT USED FOR UNKNOWN INDICATION
     Route: 065
  3. VALSARTAN SANDOZ [Suspect]
     Active Substance: VALSARTAN
     Route: 065
     Dates: start: 2012, end: 2018
  4. SANVAL [Suspect]
     Active Substance: ZOLPIDEM TARTRATE
     Indication: PRODUCT USED FOR UNKNOWN INDICATION
     Route: 065
  5. BICALUTAMID [Concomitant]
     Active Substance: BICALUTAMIDE
     Indication: PRODUCT USED FOR UNKNOWN INDICATION
     Route: 065
  6. GENTAMICIN SULFATE. [Suspect]
     Active Substance: GENTAMICIN SULFATE
     Indication: CARDIOVASCULAR DISORDER
     Route: 065
  7. VALSARTAN SANDOZ [Suspect]
     Active Substance: VALSARTAN
     Indication: BLOOD PRESSURE ABNORMAL
     Route: 065
     Dates: start: 2012, end: 201806
  8. VALSACOR [Concomitant]
     Active Substance: VALSARTAN
     Indication: PRODUCT USED FOR UNKNOWN INDICATION
     Route: 065

REACTIONS (30)
  - Mean cell volume increased [Unknown]
  - Glomerular filtration rate decreased [Unknown]
  - Sensation of blood flow [Unknown]
  - Neoplasm skin [Unknown]
  - Rash papular [Unknown]
  - Acne [Unknown]
  - Basal cell carcinoma [Unknown]
  - Skin plaque [Unknown]
  - Fall [Unknown]
  - Rash [Unknown]
  - Red blood cell count decreased [Unknown]
  - Oedema peripheral [Unknown]
  - Blood creatinine increased [Unknown]
  - Sensitive skin [Unknown]
  - Rash erythematous [Unknown]
  - Seborrhoeic keratosis [Unknown]
  - Haematocrit decreased [Unknown]
  - Skull fracture [Unknown]
  - Actinic keratosis [Unknown]
  - Dermatitis [Unknown]
  - Inflammation [Unknown]
  - Carcinoid tumour of the prostate [Unknown]
  - Bowen^s disease [Not Recovered/Not Resolved]
  - Eczema [Recovering/Resolving]
  - Symptom recurrence [Not Recovered/Not Resolved]
  - Blood urea increased [Unknown]
  - Papule [Unknown]
  - Dry skin [Unknown]
  - Pruritus [Unknown]
  - Haemoglobin decreased [Unknown]

NARRATIVE: CASE EVENT DATE: 20060322
